FAERS Safety Report 6337094-2 (Version None)
Quarter: 2009Q3

REPORT INFORMATION
  Report Type: 
  Country: None (occurrence: None)
  Receive Date: 20090831
  Receipt Date: 20090825
  Transmission Date: 20100115
  Serious: Yes (Other)
  Sender: FDA-Public Use
  Company Number: AVE_00747_2009

PATIENT
  Sex: Female

DRUGS (3)
  1. NICOTINE [Suspect]
     Indication: SMOKING CESSATION THERAPY
     Dosage: 21 MG QD TRANSDERMAL, 21 MG QD TRANSDERMAL
     Route: 062
     Dates: start: 20090711, end: 20090712
  2. NICOTINE [Suspect]
     Indication: SMOKING CESSATION THERAPY
     Dosage: 21 MG QD TRANSDERMAL, 21 MG QD TRANSDERMAL
     Route: 062
     Dates: start: 20090718, end: 20090719
  3. NICOTINE [Suspect]

REACTIONS (4)
  - ABNORMAL BEHAVIOUR [None]
  - ANGER [None]
  - SCREAMING [None]
  - SUICIDAL IDEATION [None]
